FAERS Safety Report 8153677-1 (Version None)
Quarter: 2012Q1

REPORT INFORMATION
  Report Type: 
  Country: None (occurrence: None)
  Receive Date: 20120221
  Receipt Date: 20120216
  Transmission Date: 20120608
  Serious: Yes (Hospitalization, Other)
  Sender: FDA-Public Use
  Company Number: US-ABBOTT-12P-163-0905480-00

PATIENT
  Sex: Female
  Weight: 78.996 kg

DRUGS (2)
  1. HUMIRA [Suspect]
     Indication: CROHN'S DISEASE
     Route: 058
     Dates: start: 20090101, end: 20110101
  2. HUMIRA [Suspect]
     Route: 058
     Dates: start: 20110601

REACTIONS (16)
  - VOMITING [None]
  - DEHYDRATION [None]
  - CROHN'S DISEASE [None]
  - WEIGHT INCREASED [None]
  - ANXIETY [None]
  - SOMNOLENCE [None]
  - OVARIAN CYST [None]
  - INCORRECT PRODUCT STORAGE [None]
  - HORMONE LEVEL ABNORMAL [None]
  - SLEEP DISORDER [None]
  - FISTULA [None]
  - DEPRESSION [None]
  - BULIMIA NERVOSA [None]
  - DRUG DOSE OMISSION [None]
  - HAEMORRHAGE [None]
  - ABORTION SPONTANEOUS [None]
